FAERS Safety Report 19643472 (Version 2)
Quarter: 2021Q3

REPORT INFORMATION
  Report Type: Spontaneous
  Country: CN (occurrence: CN)
  Receive Date: 20210730
  Receipt Date: 20210813
  Transmission Date: 20211014
  Serious: Yes (Death, Hospitalization, Other)
  Sender: FDA-Public Use
  Company Number: CN-SA-2021SA250786

PATIENT
  Age: 25 Year
  Sex: Male

DRUGS (14)
  1. CETUXIMAB. [Suspect]
     Active Substance: CETUXIMAB
     Indication: METASTASES TO BONE
     Dosage: 500 MG/M2
     Dates: start: 20200831
  2. CETUXIMAB. [Suspect]
     Active Substance: CETUXIMAB
     Dosage: 250 MG/M2
     Dates: start: 20200831
  3. CETUXIMAB. [Suspect]
     Active Substance: CETUXIMAB
     Indication: RECTAL CANCER
     Dosage: 500 MG/M2
  4. CETUXIMAB. [Suspect]
     Active Substance: CETUXIMAB
     Dosage: 500 UNK
  5. FLUOROURACIL. [Suspect]
     Active Substance: FLUOROURACIL
     Indication: RECTAL CANCER
     Dosage: UNK UNK, BID
     Dates: start: 20200625, end: 20200710
  6. FLUOROURACIL. [Suspect]
     Active Substance: FLUOROURACIL
     Dosage: UNK UNK, QCY
     Dates: start: 20200831
  7. CALCIUM FOLINATE [Suspect]
     Active Substance: LEUCOVORIN CALCIUM
     Indication: METASTASES TO BONE
     Dosage: UNK UNK, QCY
     Dates: start: 20200625, end: 20200710
  8. CALCIUM FOLINATE [Suspect]
     Active Substance: LEUCOVORIN CALCIUM
     Dosage: UNK UNK, QCY
     Dates: start: 20200831
  9. FLUOROURACIL. [Suspect]
     Active Substance: FLUOROURACIL
     Indication: METASTASES TO BONE
     Dosage: UNK UNK, QCY
     Dates: start: 20200625, end: 20200710
  10. CALCIUM FOLINATE [Suspect]
     Active Substance: LEUCOVORIN CALCIUM
     Indication: RECTAL CANCER
     Dosage: UNK UNK, BID
     Dates: start: 20200625, end: 20200710
  11. OXALIPLATIN. [Suspect]
     Active Substance: OXALIPLATIN
     Indication: RECTAL CANCER
     Dosage: UNK UNK, BID
     Dates: start: 20200625, end: 20200710
  12. OXALIPLATIN. [Suspect]
     Active Substance: OXALIPLATIN
     Indication: METASTASES TO BONE
     Dosage: UNK UNK, QCY
     Dates: start: 20200625, end: 20200710
  13. OXALIPLATIN. [Suspect]
     Active Substance: OXALIPLATIN
     Dosage: UNK UNK, QCY
     Dates: start: 20200831
  14. CETUXIMAB. [Suspect]
     Active Substance: CETUXIMAB
     Dosage: 500 MG/M2
     Dates: start: 20200831

REACTIONS (17)
  - Somnolence [Recovered/Resolved]
  - Chest pain [Fatal]
  - Confusional state [Recovered/Resolved]
  - Swelling face [Fatal]
  - Hepatic encephalopathy [Recovered/Resolved]
  - Altered state of consciousness [Recovered/Resolved]
  - Dysphoria [Recovered/Resolved]
  - Rash [Fatal]
  - Back pain [Fatal]
  - Apathy [Fatal]
  - Petechiae [Fatal]
  - Haematochezia [Fatal]
  - Disseminated intravascular coagulation [Fatal]
  - Hypovolaemic shock [Recovered/Resolved]
  - Hyperammonaemic encephalopathy [Recovered/Resolved]
  - Coma [Recovered/Resolved]
  - Rash pustular [Fatal]
